FAERS Safety Report 5498165-6 (Version None)
Quarter: 2007Q4

REPORT INFORMATION
  Report Type: 
  Country: None (occurrence: None)
  Receive Date: 20071025
  Receipt Date: 20070405
  Transmission Date: 20080405
  Serious: No
  Sender: FDA-Public Use
  Company Number: A0646115A

PATIENT
  Age: 6 Year
  Sex: Female

DRUGS (5)
  1. ADVAIR DISKUS 100/50 [Suspect]
     Indication: ASTHMA
     Dosage: 1PUFF PER DAY
     Route: 055
     Dates: start: 20070302
  2. NASONEX [Concomitant]
  3. ZAPONEX [Concomitant]
  4. ALBUTEROL [Concomitant]
  5. CLARITIN [Concomitant]

REACTIONS (3)
  - NASAL CONGESTION [None]
  - THROAT IRRITATION [None]
  - WHEEZING [None]
